FAERS Safety Report 21475958 (Version 1)
Quarter: 2022Q4

REPORT INFORMATION
  Report Type: Spontaneous
  Country: US (occurrence: None)
  Receive Date: 20221019
  Receipt Date: 20221019
  Transmission Date: 20230112
  Serious: No
  Sender: FDA-Public Use
  Company Number: US-ADAMAS Pharma-ADM202208-002312

PATIENT
  Sex: Male

DRUGS (2)
  1. GOCOVRI [Suspect]
     Active Substance: AMANTADINE
     Indication: Dyskinesia
  2. GOCOVRI [Suspect]
     Active Substance: AMANTADINE

REACTIONS (9)
  - Disturbance in attention [Unknown]
  - Withdrawal syndrome [Unknown]
  - Dyskinesia [Unknown]
  - Skin discolouration [Unknown]
  - Loss of personal independence in daily activities [Unknown]
  - Gait disturbance [Unknown]
  - Abnormal behaviour [Unknown]
  - Confusional state [Unknown]
  - Therapy non-responder [Unknown]
